FAERS Safety Report 25159629 (Version 1)
Quarter: 2025Q2

REPORT INFORMATION
  Report Type: Spontaneous
  Country: IT (occurrence: IT)
  Receive Date: 20250404
  Receipt Date: 20250404
  Transmission Date: 20250716
  Serious: Yes (Death)
  Sender: MACLEODS
  Company Number: IT-MACLEODS PHARMA-MAC2025052398

PATIENT

DRUGS (1)
  1. SILDENAFIL [Suspect]
     Active Substance: SILDENAFIL
     Indication: Product used for unknown indication
     Route: 065

REACTIONS (3)
  - Aortic dissection [Fatal]
  - Aortic aneurysm [Fatal]
  - Haemorrhage intracranial [Fatal]
